FAERS Safety Report 17212246 (Version 2)
Quarter: 2020Q1

REPORT INFORMATION
  Report Type: Spontaneous
  Country: US (occurrence: US)
  Receive Date: 20191230
  Receipt Date: 20200207
  Transmission Date: 20200409
  Serious: No
  Sender: FDA-Public Use
  Company Number: US-009507513-1912USA001320

PATIENT
  Sex: Male

DRUGS (6)
  1. FLOVENT [Concomitant]
     Active Substance: FLUTICASONE PROPIONATE
     Dosage: UNK
  2. PROVENTIL [Suspect]
     Active Substance: ALBUTEROL
     Dosage: 1-2 PUFFS EVERY 4-6 HOURS
  3. PROVENTIL [Suspect]
     Active Substance: ALBUTEROL
     Dosage: 1-2 PUFFS EVERY 4-6 HOURS
  4. PROVENTIL [Suspect]
     Active Substance: ALBUTEROL
     Indication: CHRONIC OBSTRUCTIVE PULMONARY DISEASE
     Dosage: 1-2, Q 4-6 H
     Dates: start: 20191022
  5. PROVENTIL [Suspect]
     Active Substance: ALBUTEROL
     Dosage: 1-2 PUFFS EVERY 4-6 HOURS
  6. SEREVENT DISKUS [Concomitant]
     Active Substance: SALMETEROL XINAFOATE
     Dosage: UNK

REACTIONS (4)
  - Dyspnoea [Recovered/Resolved]
  - Product dose omission [Unknown]
  - Poor quality device used [Unknown]
  - Product quality issue [Unknown]

NARRATIVE: CASE EVENT DATE: 2019
